FAERS Safety Report 4479676-9 (Version None)
Quarter: 2004Q4

REPORT INFORMATION
  Report Type: 
  Country: None (occurrence: None)
  Receive Date: 20041020
  Receipt Date: 20041019
  Transmission Date: 20050328
  Serious: Yes (Disabling, Other)
  Sender: FDA-Public Use
  Company Number: US-GLAXOSMITHKLINE-A0530395A

PATIENT
  Age: 56 Year
  Sex: Female

DRUGS (4)
  1. LAMICTAL [Suspect]
     Indication: BIPOLAR DISORDER
     Dosage: 25MG PER DAY
     Route: 048
  2. VALIUM [Concomitant]
  3. VICODIN [Concomitant]
  4. NEURONTIN [Concomitant]

REACTIONS (2)
  - HEADACHE [None]
  - IRRITABLE BOWEL SYNDROME [None]
